FAERS Safety Report 7540585-X (Version None)
Quarter: 2011Q2

REPORT INFORMATION
  Report Type: 
  Country: None (occurrence: None)
  Receive Date: 20110610
  Receipt Date: 20110603
  Transmission Date: 20111010
  Serious: Yes (Other)
  Sender: FDA-Public Use
  Company Number: B0725472A

PATIENT
  Age: 44 Year
  Sex: Female

DRUGS (1)
  1. HEPTODIN [Suspect]
     Indication: HEPATIC CIRRHOSIS
     Dosage: .1G PER DAY
     Route: 048
     Dates: start: 20110510

REACTIONS (4)
  - BONE PAIN [None]
  - WHITE BLOOD CELL COUNT DECREASED [None]
  - MYALGIA [None]
  - TRANSAMINASES INCREASED [None]
